FAERS Safety Report 5841290-8 (Version None)
Quarter: 2008Q3

REPORT INFORMATION
  Report Type: 
  Country: None (occurrence: None)
  Receive Date: 20080731
  Receipt Date: 20080512
  Transmission Date: 20090109
  Serious: No
  Sender: FDA-Public Use
  Company Number: US200805002537

PATIENT
  Age: 49 Year
  Sex: Female
  Weight: 81.6 kg

DRUGS (3)
  1. BYETTA [Suspect]
     Indication: TYPE 2 DIABETES MELLITUS
     Dosage: 5 UG, 2/D, SUBCUTANEOUS
     Route: 058
     Dates: start: 20070101
  2. AVANDIA [Concomitant]
  3. DRUG USED IN DIABETES [Concomitant]

REACTIONS (2)
  - INCORRECT DOSE ADMINISTERED [None]
  - WEIGHT DECREASED [None]
